FAERS Safety Report 6055785-8 (Version None)
Quarter: 2009Q1

REPORT INFORMATION
  Report Type: 
  Country: None (occurrence: None)
  Receive Date: 20090126
  Receipt Date: 20090112
  Transmission Date: 20090719
  Serious: Yes (Death, Hospitalization, Other)
  Sender: FDA-Public Use
  Company Number: 55964

PATIENT
  Age: 18 Year
  Sex: Female

DRUGS (2)
  1. METHOTREXATE [Suspect]
     Indication: ACUTE LYMPHOCYTIC LEUKAEMIA
     Dosage: 15MG
  2. CYTARABINE [Suspect]
     Indication: ACUTE LYMPHOCYTIC LEUKAEMIA
     Dosage: 40MG

REACTIONS (7)
  - AZOTAEMIA [None]
  - BLOOD FIBRINOGEN INCREASED [None]
  - CARDIAC FAILURE CONGESTIVE [None]
  - FIBRIN DEGRADATION PRODUCTS INCREASED [None]
  - MARROW HYPERPLASIA [None]
  - OLIGURIA [None]
  - TUMOUR LYSIS SYNDROME [None]
